FAERS Safety Report 5319324-9 (Version None)
Quarter: 2007Q2

REPORT INFORMATION
  Report Type: 
  Country: None (occurrence: None)
  Receive Date: 20070508
  Receipt Date: 20070426
  Transmission Date: 20071010
  Serious: Yes (Other)
  Sender: FDA-Public Use
  Company Number: BR-PFIZER INC-2007034953

PATIENT
  Sex: Male
  Weight: 77 kg

DRUGS (1)
  1. VIAGRA [Suspect]
     Route: 048

REACTIONS (4)
  - FACE OEDEMA [None]
  - GENERALISED OEDEMA [None]
  - OCULAR HYPERAEMIA [None]
  - WEIGHT INCREASED [None]
